FAERS Safety Report 10241520 (Version 2)
Quarter: 2014Q3

REPORT INFORMATION
  Report Type: Spontaneous
  Country: SE (occurrence: None)
  Receive Date: 20140613
  Receipt Date: 20140701
  Transmission Date: 20150326
  Serious: Yes (Other)
  Sender: FDA-Public Use
  Company Number: 201406011

PATIENT
  Age: 70 Year
  Sex: Male

DRUGS (7)
  1. XIAPEX (CLOSTRIDIAL COLLAGENASE) [Suspect]
     Active Substance: COLLAGENASE CLOSTRIDIUM HISTOLYTICUM
     Indication: DUPUYTREN^S CONTRACTURE
     Dosage: 0.58 MG, 1 IN 1 D, INTRALESIONAL ?
     Dates: start: 20120306, end: 20120306
  2. WARFARIN SODIUM (WARFARIN SODIUM) [Concomitant]
     Active Substance: WARFARIN SODIUM
  3. PREDNISOLONE (PREDNISOLONE) [Concomitant]
     Active Substance: PREDNISOLONE
  4. CANDESARSTAD (CANDESARTAN CILEXETIL) [Concomitant]
  5. SIMVASTATIN (SIMVASTATIN) [Concomitant]
     Active Substance: SIMVASTATIN
  6. XATRAL (ALFUZOSIN HYDROCHLORIDE) [Concomitant]
  7. ALENAT (ALENDRONATE SODIUM) [Concomitant]

REACTIONS (3)
  - Polymyalgia rheumatica [None]
  - Arthropathy [None]
  - Dupuytren^s contracture [None]

NARRATIVE: CASE EVENT DATE: 20140413
